FAERS Safety Report 9644141 (Version 1)
Quarter: 2013Q4

REPORT INFORMATION
  Report Type: Spontaneous
  Country: JP (occurrence: JP)
  Receive Date: 20131024
  Receipt Date: 20131024
  Transmission Date: 20140711
  Serious: Yes (Hospitalization, Other)
  Sender: FDA-Public Use
  Company Number: JP-BAXTER-2013BAX041048

PATIENT
  Age: 81 Year
  Sex: Female

DRUGS (1)
  1. EXTRANEAL PD SOLUTION [Suspect]
     Indication: PERITONEAL DIALYSIS
     Route: 065

REACTIONS (3)
  - Decreased appetite [Unknown]
  - Peritonitis [Unknown]
  - Pleuroperitoneal communication [Unknown]
